FAERS Safety Report 14068112 (Version 1)
Quarter: 2017Q4

REPORT INFORMATION
  Report Type: Spontaneous
  Country: US (occurrence: US)
  Receive Date: 20171009
  Receipt Date: 20171009
  Transmission Date: 20180321
  Serious: Yes (Life-Threatening, Hospitalization, Disabling)
  Sender: FDA-Public Use
  Company Number: None

PATIENT
  Age: 52 Year
  Sex: Female
  Weight: 50.4 kg

DRUGS (7)
  1. VITAMIN D [Concomitant]
     Active Substance: CHOLECALCIFEROL
  2. MORPHINE SULFATE. [Concomitant]
     Active Substance: MORPHINE SULFATE
  3. CARISOPRODOL. [Concomitant]
     Active Substance: CARISOPRODOL
  4. ONDANSETRON [Concomitant]
     Active Substance: ONDANSETRON
  5. OMEPRAZOLE. [Concomitant]
     Active Substance: OMEPRAZOLE
  6. OPDIVO [Suspect]
     Active Substance: NIVOLUMAB
     Indication: MALIGNANT MELANOMA STAGE III
     Dosage: ?          OTHER FREQUENCY:EVERY TWO WEEKS;?
     Route: 042
  7. LANTUS [Concomitant]
     Active Substance: INSULIN GLARGINE

REACTIONS (7)
  - Vomiting [None]
  - Diabetic ketoacidosis [None]
  - Type 1 diabetes mellitus [None]
  - Blood glucose increased [None]
  - Thirst [None]
  - Pollakiuria [None]
  - Drug dose omission [None]

NARRATIVE: CASE EVENT DATE: 20170926
